FAERS Safety Report 4396624-0 (Version None)
Quarter: 2004Q3

REPORT INFORMATION
  Report Type: 
  Country: None (occurrence: None)
  Receive Date: 20040713
  Receipt Date: 20040713
  Transmission Date: 20050211
  Serious: No
  Sender: FDA-Public Use
  Company Number: None

PATIENT
  Sex: Female
  Weight: 63.5036 kg

DRUGS (1)
  1. VANCOMYCIN [Suspect]
     Indication: STAPHYLOCOCCAL INFECTION
     Dosage: 1 GM Q 12 HOURS IV
     Route: 042
     Dates: start: 20040712

REACTIONS (2)
  - OBSTRUCTIVE AIRWAYS DISORDER [None]
  - SELF-MEDICATION [None]
